FAERS Safety Report 8350353-7 (Version None)
Quarter: 2012Q2

REPORT INFORMATION
  Report Type: 
  Country: None (occurrence: None)
  Receive Date: 20120510
  Receipt Date: 20120502
  Transmission Date: 20120825
  Serious: Yes (Hospitalization)
  Sender: FDA-Public Use
  Company Number: US-BAYER-2012-044252

PATIENT
  Age: 18 Year
  Sex: Female

DRUGS (6)
  1. NABUMETONE [Concomitant]
     Dosage: UNK
     Dates: start: 20110201
  2. SINGULAIR [Concomitant]
     Dosage: 10 MG, EVERY EVENING
     Dates: start: 20090701
  3. SINGULAIR [Concomitant]
     Dosage: 5MG DAILY
  4. PROMETHAZINE [Concomitant]
     Dosage: UNK
     Dates: start: 20110201
  5. YAZ [Suspect]
     Indication: CONTRACEPTION
  6. TRAMADOL HYDROCHLORIDE [Concomitant]
     Dosage: UNK
     Dates: start: 20110201

REACTIONS (1)
  - SUPERIOR SAGITTAL SINUS THROMBOSIS [None]
